FAERS Safety Report 19551639 (Version 1)
Quarter: 2021Q3

REPORT INFORMATION
  Report Type: Other
  Country: IR (occurrence: IR)
  Receive Date: 20210714
  Receipt Date: 20210714
  Transmission Date: 20211014
  Serious: Yes (Hospitalization, Other)
  Sender: FDA-Public Use
  Company Number: IR-BIOLOGICAL E. LTD-2113811

PATIENT
  Age: 76 Year
  Sex: Male

DRUGS (3)
  1. DEXAMETHASONE. [Concomitant]
     Active Substance: DEXAMETHASONE
     Route: 065
  2. HEPARIN SODIUM INJECTION USP, 5,000 UNITS PER 0.5 ML (10,000 UNITS PER [Suspect]
     Active Substance: HEPARIN SODIUM
     Indication: THROMBOSIS PROPHYLAXIS
     Route: 058
  3. REMDESIVIR. [Concomitant]
     Active Substance: REMDESIVIR
     Route: 065

REACTIONS (7)
  - Therapy non-responder [Unknown]
  - Acute myocardial infarction [Unknown]
  - Splenic infarction [Unknown]
  - Acute kidney injury [Unknown]
  - Azotaemia [Unknown]
  - Renal infarct [Unknown]
  - Metabolic acidosis [Unknown]
